FAERS Safety Report 4653428-9 (Version None)
Quarter: 2005Q2

REPORT INFORMATION
  Report Type: 
  Country: None (occurrence: None)
  Receive Date: 20050503
  Receipt Date: 20050419
  Transmission Date: 20051028
  Serious: No
  Sender: FDA-Public Use
  Company Number: BR-2005-006286

PATIENT
  Age: 28 Year
  Sex: Female

DRUGS (1)
  1. YASMIN [Suspect]
     Indication: DYSMENORRHOEA
     Dosage: 1 TAB(S), CONT, ORAL
     Route: 048
     Dates: start: 20050101

REACTIONS (3)
  - ENDOMETRIOSIS [None]
  - LIP DISCOLOURATION [None]
  - OVARIAN CYST [None]
